FAERS Safety Report 6299057 (Version 4)
Quarter: 2014Q2

REPORT INFORMATION
  Report Type: Spontaneous
  Country: US (occurrence: US)
  Receive Date: 20070428
  Receipt Date: 20131017
  Transmission Date: 20141212
  Serious: Yes (Other)
  Sender: FDA-Public Use
  Company Number: US-PFIZER INC-2007031138

PATIENT
  Age: 59 Year
  Sex: Female
  Weight: 43.08 kg

DRUGS (9)
  1. DILANTIN-125 [Suspect]
     Indication: CONVULSION
     Dosage: 300 MG, 3X/DAY
  2. DILANTIN-125 [Suspect]
     Dosage: 200 MG, 2X/DAY
  3. CHANTIX [Suspect]
     Indication: SMOKING CESSATION THERAPY
     Dosage: 0.5 MG, 1X/DAY
     Dates: start: 20070408, end: 200704
  4. CHANTIX [Suspect]
     Dosage: 0.5 MG, 2X/DAY
     Dates: end: 200704
  5. CHANTIX [Suspect]
     Dosage: 1 MG, 2X/DAY
     Dates: start: 200704
  6. TEGRETOL [Concomitant]
  7. LIPITOR [Concomitant]
     Indication: BLOOD CHOLESTEROL INCREASED
     Dosage: 20 MG, DAILY
  8. NEXIUM [Concomitant]
  9. ADVAIR [Concomitant]
     Indication: DYSPNOEA
     Dosage: ONE PUFF, 2X/DAY

REACTIONS (10)
  - Brain neoplasm [Unknown]
  - Abnormal dreams [Recovering/Resolving]
  - Somnolence [Recovering/Resolving]
  - Depression [Recovering/Resolving]
  - Dizziness [Recovering/Resolving]
  - Visual impairment [Recovering/Resolving]
  - Balance disorder [Recovering/Resolving]
  - Dizziness [Recovering/Resolving]
  - Asthenia [Recovering/Resolving]
  - Sluggishness [Recovering/Resolving]
